FAERS Safety Report 6309856-9 (Version None)
Quarter: 2009Q3

REPORT INFORMATION
  Report Type: 
  Country: None (occurrence: None)
  Receive Date: 20090814
  Receipt Date: 20090803
  Transmission Date: 20100115
  Serious: Yes (Hospitalization)
  Sender: FDA-Public Use
  Company Number: US-PFIZER INC-2009249943

PATIENT
  Age: 46 Year
  Sex: Male

DRUGS (3)
  1. ZIPRASIDONE HCL [Suspect]
     Dosage: 80 MG, 2X/DAY
     Route: 048
  2. QUETIAPINE [Suspect]
     Indication: SCHIZOPHRENIA
     Dosage: 200 MG, 1X/DAY MORNING
     Route: 048
  3. QUETIAPINE [Suspect]
     Dosage: 800 MG, 1X/DAY NIGHTLY

REACTIONS (1)
  - INAPPROPRIATE ANTIDIURETIC HORMONE SECRETION [None]
